FAERS Safety Report 22197993 (Version 1)
Quarter: 2023Q2

REPORT INFORMATION
  Report Type: Spontaneous
  Country: IT (occurrence: IT)
  Receive Date: 20230411
  Receipt Date: 20230411
  Transmission Date: 20230722
  Serious: Yes (Other)
  Sender: FDA-Public Use
  Company Number: None

PATIENT
  Age: 64 Year
  Sex: Male

DRUGS (1)
  1. OFEV [Suspect]
     Active Substance: NINTEDANIB
     Indication: Pulmonary fibrosis
     Route: 048
     Dates: start: 2019

REACTIONS (3)
  - Diarrhoea [Recovering/Resolving]
  - Haematochezia [Recovering/Resolving]
  - Flank pain [Recovering/Resolving]

NARRATIVE: CASE EVENT DATE: 20230323
